FAERS Safety Report 5468350-8 (Version None)
Quarter: 2007Q3

REPORT INFORMATION
  Report Type: 
  Country: None (occurrence: None)
  Receive Date: 20070926
  Receipt Date: 20070920
  Transmission Date: 20080115
  Serious: Yes (Hospitalization)
  Sender: FDA-Public Use
  Company Number: B0483044A

PATIENT
  Age: 61 Year
  Sex: Male
  Weight: 65 kg

DRUGS (15)
  1. PAXIL [Suspect]
     Indication: DEPRESSION
     Dosage: 10MG TWICE PER DAY
     Route: 048
     Dates: start: 20070802, end: 20070807
  2. WARFARIN SODIUM [Suspect]
     Indication: THROMBOSIS PROPHYLAXIS
     Dosage: 2MG PER DAY
     Route: 048
     Dates: end: 20070810
  3. SERMION [Concomitant]
     Indication: CEREBRAL INFARCTION
     Route: 048
     Dates: end: 20070810
  4. CEPHADOL [Concomitant]
     Route: 048
  5. DEPAS [Concomitant]
     Indication: NEUROSIS
     Route: 048
  6. MUCOSTA [Concomitant]
     Route: 048
  7. UNKNOWN DRUG [Concomitant]
     Route: 048
  8. PANTOSIN [Concomitant]
     Route: 048
  9. LANSOPRAZOLE [Concomitant]
     Dosage: 15MG PER DAY
     Route: 048
     Dates: start: 20070727
  10. NU-LOTAN [Concomitant]
     Indication: HYPERTENSION
     Dosage: 25MG PER DAY
     Route: 048
     Dates: end: 20070809
  11. METILDIGOXIN [Concomitant]
     Route: 048
  12. HYDROXYZINE PAMOATE [Concomitant]
     Dosage: 25MG PER DAY
     Route: 065
  13. AMOBAN [Concomitant]
     Indication: INSOMNIA
     Route: 048
     Dates: end: 20070810
  14. ESTAZOLAM [Concomitant]
     Indication: INSOMNIA
     Dosage: 2MG PER DAY
     Route: 065
     Dates: end: 20070810
  15. NORVASC [Concomitant]
     Indication: HYPERTENSION
     Route: 048

REACTIONS (2)
  - CEREBRAL HAEMORRHAGE [None]
  - MUSCULAR WEAKNESS [None]
